FAERS Safety Report 13933944 (Version 4)
Quarter: 2018Q3

REPORT INFORMATION
  Report Type: Spontaneous
  Country: US (occurrence: US)
  Receive Date: 20170904
  Receipt Date: 20180925
  Transmission Date: 20181010
  Serious: Yes (Hospitalization, Other)
  Sender: FDA-Public Use
  Company Number: US-DSJP-DSU-2017-134465

PATIENT

DRUGS (1)
  1. BENICAR HCT [Suspect]
     Active Substance: HYDROCHLOROTHIAZIDE\OLMESARTAN MEDOXOMIL
     Indication: HYPERTENSION
     Dosage: 40?25 MG, QD
     Route: 048
     Dates: start: 20070724, end: 201404

REACTIONS (4)
  - Hiatus hernia [Unknown]
  - Acquired oesophageal web [Recovering/Resolving]
  - Sprue-like enteropathy [Recovered/Resolved]
  - Colon adenoma [Unknown]

NARRATIVE: CASE EVENT DATE: 20071201
